FAERS Safety Report 16341715 (Version 1)
Quarter: 2019Q2

REPORT INFORMATION
  Report Type: Spontaneous
  Country: DE (occurrence: DE)
  Receive Date: 20190522
  Receipt Date: 20190522
  Transmission Date: 20190711
  Serious: Yes (Other)
  Sender: FDA-Public Use
  Company Number: DE-ACCORD-128825

PATIENT
  Age: 78 Year
  Sex: Male
  Weight: 70 kg

DRUGS (11)
  1. CERTOPARIN SODIUM [Concomitant]
     Active Substance: CERTOPARIN SODIUM
     Dosage: 0-0-1 BIS INR IM ZIEL
  2. REPAGLINIDE. [Concomitant]
     Active Substance: REPAGLINIDE
     Dosage: 3G-2G-2G
  3. BELOC-ZOK [Suspect]
     Active Substance: METOPROLOL SUCCINATE
     Indication: HYPERTENSION
     Dosage: 1/2-0-1/2, 95 MG
     Dates: start: 1986
  4. ENTRESTO [Concomitant]
     Active Substance: SACUBITRIL\VALSARTAN
     Indication: CARDIAC FAILURE
     Dosage: 1-0-1 (49/51 MG), 1-0-1 (24/26 MG)
     Route: 048
     Dates: start: 2007
  5. ASPIRIN. [Concomitant]
     Active Substance: ASPIRIN
     Dosage: 1-0-0, 100
  6. ALLOPURINOL. [Concomitant]
     Active Substance: ALLOPURINOL
     Dosage: 0-0-1/2, 100 MG
  7. TOREM [Concomitant]
     Active Substance: TORSEMIDE
     Dosage: 1-1/2-0, 10 MG
  8. MARCUMAR [Concomitant]
     Active Substance: PHENPROCOUMON
     Dosage: AFTER INR
  9. SIMVASTATIN. [Concomitant]
     Active Substance: SIMVASTATIN
     Dosage: 0-0-1
  10. CLOPIDOGREL [Suspect]
     Active Substance: CLOPIDOGREL BISULFATE
     Indication: ANTICOAGULANT THERAPY
     Dosage: 1-0-0
     Route: 048
     Dates: start: 20180629, end: 20181230
  11. SPIRONOLACTON HEXAL [Suspect]
     Active Substance: SPIRONOLACTONE
     Indication: PRODUCT USED FOR UNKNOWN INDICATION
     Dosage: 1-0-0, 50 MG
     Route: 048
     Dates: start: 20180712

REACTIONS (10)
  - Rash vesicular [Not Recovered/Not Resolved]
  - Skin exfoliation [Not Recovered/Not Resolved]
  - Pruritus [Not Recovered/Not Resolved]
  - Rash [Not Recovered/Not Resolved]
  - Cough [Not Recovered/Not Resolved]
  - Pemphigoid [Not Recovered/Not Resolved]
  - Skin reaction [Not Recovered/Not Resolved]
  - Oedema peripheral [Not Recovered/Not Resolved]
  - Dyspnoea exertional [Unknown]
  - Weight bearing difficulty [Unknown]

NARRATIVE: CASE EVENT DATE: 2018
